FAERS Safety Report 8136372-4 (Version None)
Quarter: 2012Q1

REPORT INFORMATION
  Report Type: 
  Country: None (occurrence: None)
  Receive Date: 20120214
  Receipt Date: 20120209
  Transmission Date: 20120608
  Serious: Yes (Hospitalization)
  Sender: FDA-Public Use
  Company Number: US-AMGEN-USASP2011027838

PATIENT
  Age: 49 Year
  Sex: Female
  Weight: 73.243 kg

DRUGS (4)
  1. VINCRISTINE [Concomitant]
  2. STEROID ANTIBACTERIALS [Concomitant]
  3. IMMUNE GLOBULIN (HUMAN) [Concomitant]
  4. NPLATE [Suspect]
     Indication: IDIOPATHIC THROMBOCYTOPENIC PURPURA
     Dosage: 70 MUG, QWK
     Route: 058
     Dates: start: 20090904

REACTIONS (1)
  - OSTEONECROSIS [None]
